FAERS Safety Report 12519479 (Version 1)
Quarter: 2016Q2

REPORT INFORMATION
  Report Type: Spontaneous
  Country: US (occurrence: US)
  Receive Date: 20160630
  Receipt Date: 20160630
  Transmission Date: 20160815
  Serious: Yes (Other)
  Sender: FDA-Public Use
  Company Number: US-TEVA-672510USA

PATIENT
  Age: 48 Year
  Sex: Female

DRUGS (13)
  1. PROVIGIL [Concomitant]
     Active Substance: MODAFINIL
  2. DIAZEPAM. [Concomitant]
     Active Substance: DIAZEPAM
  3. PERCOCET [Concomitant]
     Active Substance: ACETAMINOPHEN\OXYCODONE HYDROCHLORIDE
     Dosage: 10-325 MG
  4. CLONAZEPAM. [Concomitant]
     Active Substance: CLONAZEPAM
  5. COPAXONE [Suspect]
     Active Substance: GLATIRAMER ACETATE
     Indication: MULTIPLE SCLEROSIS
     Dosage: UNKNOWN FORM STRENGTH
  6. COPAXONE [Suspect]
     Active Substance: GLATIRAMER ACETATE
     Route: 058
     Dates: start: 20160601
  7. PAXIL [Concomitant]
     Active Substance: PAROXETINE HYDROCHLORIDE
  8. PAROXETINE. [Concomitant]
     Active Substance: PAROXETINE
  9. OXYTOCIN. [Concomitant]
     Active Substance: OXYTOCIN
  10. NUVIGIL [Concomitant]
     Active Substance: ARMODAFINIL
  11. AMPYRA [Concomitant]
     Active Substance: DALFAMPRIDINE
  12. KEPPRA [Concomitant]
     Active Substance: LEVETIRACETAM
  13. SUMATRIPTAN. [Concomitant]
     Active Substance: SUMATRIPTAN

REACTIONS (2)
  - Infection [Recovered/Resolved]
  - Multiple sclerosis relapse [Unknown]

NARRATIVE: CASE EVENT DATE: 201605
